FAERS Safety Report 21459534 (Version 1)
Quarter: 2022Q4

REPORT INFORMATION
  Report Type: Spontaneous
  Country: US (occurrence: US)
  Receive Date: 20221014
  Receipt Date: 20221014
  Transmission Date: 20230112
  Serious: No
  Sender: FDA-Public Use
  Company Number: US-TEVA-2022-US-2082371

PATIENT
  Sex: Female

DRUGS (3)
  1. METRONIDAZOLE [Suspect]
     Active Substance: METRONIDAZOLE
     Indication: Product used for unknown indication
     Dosage: 500 MILLIGRAM
     Route: 065
     Dates: start: 20221001
  2. METRONIDAZOLE [Suspect]
     Active Substance: METRONIDAZOLE
     Dosage: 250 MILLIGRAM
     Route: 048
  3. CIPROFLOXACIN HYDROCHLORIDE [Concomitant]
     Active Substance: CIPROFLOXACIN HYDROCHLORIDE
     Indication: Product used for unknown indication

REACTIONS (6)
  - Product after taste [Not Recovered/Not Resolved]
  - Dysgeusia [Unknown]
  - Abdominal discomfort [Unknown]
  - Dizziness [Unknown]
  - Headache [Unknown]
  - Emotional distress [Unknown]

NARRATIVE: CASE EVENT DATE: 20221001
